FAERS Safety Report 23314115 (Version 3)
Quarter: 2024Q3

REPORT INFORMATION
  Report Type: Report from Study
  Country: AT (occurrence: AT)
  Receive Date: 20231219
  Receipt Date: 20240813
  Transmission Date: 20241017
  Serious: Yes (Hospitalization, Other)
  Sender: PFIZER
  Company Number: AT-BAXTER-2023BAX037513

PATIENT
  Age: 77 Year
  Sex: Female
  Weight: 75 kg

DRUGS (36)
  1. DOXORUBICIN HYDROCHLORIDE [Suspect]
     Active Substance: DOXORUBICIN HYDROCHLORIDE
     Indication: Diffuse large B-cell lymphoma
     Dosage: 47.52 MG, EVERY 3 WEEKS
     Route: 042
     Dates: start: 20231113, end: 20240313
  2. VINCRISTINE SULFATE [Suspect]
     Active Substance: VINCRISTINE SULFATE
     Indication: Diffuse large B-cell lymphoma
     Dosage: 2 MG, EVERY 3 WEEKS
     Route: 042
     Dates: start: 20231113, end: 20240313
  3. RITUXIMAB [Suspect]
     Active Substance: RITUXIMAB
     Indication: Diffuse large B-cell lymphoma stage IV
     Dosage: 712.77 MG, EVERY 3 WEEKS
     Route: 042
     Dates: start: 20231113, end: 20240313
  4. PREDNISONE [Suspect]
     Active Substance: PREDNISONE
     Indication: Diffuse large B-cell lymphoma
     Dosage: 100 MG C1-6, DAY 1-5, EVERY 1 DAYS
     Route: 048
     Dates: start: 20231113, end: 20240317
  5. PREDNISONE [Suspect]
     Active Substance: PREDNISONE
     Dosage: 100 MG C1-6, DAY 1-5, EVERY 1 DAYS
     Route: 048
     Dates: start: 20231205
  6. CYCLOPHOSPHAMIDE [Suspect]
     Active Substance: CYCLOPHOSPHAMIDE
     Indication: Diffuse large B-cell lymphoma
     Dosage: 712.77 MG, EVERY 3 WEEKS
     Route: 042
     Dates: start: 20231113, end: 20240313
  7. EPCORITAMAB [Suspect]
     Active Substance: EPCORITAMAB
     Indication: Diffuse large B-cell lymphoma
     Dosage: 0.16 MG PRIMING DOSE; C1, D1, TOTAL
     Route: 058
     Dates: start: 20231114, end: 20231114
  8. EPCORITAMAB [Suspect]
     Active Substance: EPCORITAMAB
     Dosage: 0.16 MG RE-PRIMING, TOTAL
     Route: 058
     Dates: start: 20231205, end: 20231205
  9. EPCORITAMAB [Suspect]
     Active Substance: EPCORITAMAB
     Dosage: 0.8 MG INTERMEDIATE DOSE, TOTAL
     Route: 058
     Dates: start: 20231212, end: 20231212
  10. EPCORITAMAB [Suspect]
     Active Substance: EPCORITAMAB
     Dosage: 48 MG FULL DOSE, TOTAL
     Route: 058
     Dates: start: 20231219, end: 20231219
  11. EPCORITAMAB [Suspect]
     Active Substance: EPCORITAMAB
     Dosage: 48 MG C1 (STEP-UP), CYCLES 2 - 4 (21-DAY CYCLE, WEEKLY DOSE), C5 - 8 (21-DAY CYCLE, EVERY 3 WEEKS) P
     Route: 058
     Dates: start: 20240103, end: 20240424
  12. LIDAPRIM [SULFAMETROLE SODIUM;TRIMETHOPRIM] [Concomitant]
     Indication: Infection prophylaxis
     Dosage: 800 MG SULFAMTROL/160 MG TRIMETHOPRIM, 3/WEEKS
     Dates: start: 20231115
  13. BISOPROLOL [Concomitant]
     Active Substance: BISOPROLOL\BISOPROLOL FUMARATE
     Indication: Atrial fibrillation
     Dosage: 5 MG, DAILY
     Dates: start: 1998
  14. APREPITANT [Concomitant]
     Active Substance: APREPITANT
     Indication: Prophylaxis of nausea and vomiting
     Dosage: 125/80 MG, OCCASIONAL
     Dates: start: 20231113
  15. LEVOTHYROXINE SODIUM [Concomitant]
     Active Substance: LEVOTHYROXINE SODIUM
     Indication: Product substitution
     Dosage: 50 UG, DAILY
     Dates: start: 1994
  16. LEVOTHYROXINE SODIUM [Concomitant]
     Active Substance: LEVOTHYROXINE SODIUM
     Indication: Hypothyroidism
  17. ATORVASTATIN [Concomitant]
     Active Substance: ATORVASTATIN
     Dosage: 80 MG, DAILY
     Route: 065
     Dates: start: 20231108
  18. LASIX [Concomitant]
     Active Substance: FUROSEMIDE
     Indication: Primary biliary cholangitis
     Dosage: 30 MG, DAILY
     Dates: start: 20231108
  19. ALLOPURINOL [Concomitant]
     Active Substance: ALLOPURINOL
     Indication: Prophylaxis
     Dosage: 300 MG, DAILY
     Route: 065
     Dates: start: 20231116
  20. SICCAFORTE [Concomitant]
     Indication: Eye disorder prophylaxis
     Dosage: OCCASIONAL
     Route: 065
     Dates: start: 2020
  21. URSODIOL [Concomitant]
     Active Substance: URSODIOL
     Indication: Primary biliary cholangitis
     Dosage: 500 MG, 2/DAYS
     Route: 065
     Dates: start: 20210521
  22. PANTOPRAZOLE [Concomitant]
     Active Substance: PANTOPRAZOLE
     Indication: Gastrointestinal disorder prophylaxis
     Dosage: 40 MG, DAILY
     Route: 065
     Dates: start: 20231114
  23. GEROVIT [ASCORBIC ACID;CYANOCOBALAMIN;ERGOCALCIFEROL;NICOTINAMIDE;PYRI [Concomitant]
     Indication: Vitamin supplementation
     Dosage: 40 DROP, WEEKLY
  24. CHLORHEXAMED FORTE [Concomitant]
     Indication: Prophylaxis
     Dosage: 500 ML, EVERY 6 HOURS
     Dates: start: 20231112
  25. CHLORHEXAMED FORTE [Concomitant]
     Indication: Stomatitis
  26. CANDESARTAN [Concomitant]
     Active Substance: CANDESARTAN
     Indication: Hypertension
     Dosage: 8 MG, DAILY
     Dates: start: 2003
  27. XARELTO [Concomitant]
     Active Substance: RIVAROXABAN
     Indication: Atrial fibrillation
     Dosage: 20 MG, DAILY
     Dates: start: 202005
  28. DIOSMIN [Concomitant]
     Active Substance: DIOSMIN
     Indication: Peripheral venous disease
     Dosage: 500 MG, DAILY
     Route: 065
     Dates: start: 2003
  29. VIROPEL [Concomitant]
     Indication: Antiviral prophylaxis
     Dosage: 500 MG, DAILY
     Dates: start: 20231115
  30. POTASSIUM CHLORIDE [Concomitant]
     Active Substance: POTASSIUM CHLORIDE
     Indication: Hypokalaemia
     Dosage: 1200 MG, EVERY 12 HOURS
     Route: 065
     Dates: start: 20240224
  31. GEROVIT D3 [Concomitant]
     Indication: Vitamin supplementation
     Dosage: 40 DROPS, EVERY 1 WEEKS
     Route: 065
  32. LEVOFLOXACIN [Concomitant]
     Active Substance: LEVOFLOXACIN
     Indication: Infection prophylaxis
     Dosage: 500 MG, EVERY 1 DAYS
     Route: 065
     Dates: start: 20240223
  33. AMIODARONE [Concomitant]
     Active Substance: AMIODARONE
     Indication: Atrial fibrillation
     Dosage: 200 MG, EVERY 1 DAYS
     Dates: start: 20240110
  34. ROSUVASTATIN [Concomitant]
     Active Substance: ROSUVASTATIN\ROSUVASTATIN CALCIUM
     Indication: Cerebral artery occlusion
     Dosage: 40 MG, EVERY 1 DAYS
     Dates: start: 20240326
  35. DIMENHYDRINATE [Concomitant]
     Active Substance: DIMENHYDRINATE
     Indication: Vertigo
     Dosage: 50 MG, EVERY 8 HOURS
     Dates: start: 20240317
  36. MICRO KALIUM [Concomitant]
     Indication: Hypokalaemia
     Dosage: 1200 MG, EVERY 12 HOURS
     Route: 065
     Dates: start: 20240224

REACTIONS (2)
  - Febrile neutropenia [Recovered/Resolved]
  - Febrile neutropenia [Not Recovered/Not Resolved]

NARRATIVE: CASE EVENT DATE: 20231123
